FAERS Safety Report 15233937 (Version 1)
Quarter: 2018Q3

REPORT INFORMATION
  Report Type: Spontaneous
  Country: US (occurrence: US)
  Receive Date: 20180709
  Receipt Date: 20180709
  Transmission Date: 20181010
  Serious: Yes (Disabling)
  Sender: FDA-Public Use
  Company Number: None

PATIENT
  Age: 64 Year
  Sex: Female
  Weight: 61.65 kg

DRUGS (8)
  1. SYNTHROID/LEVOTHYROXIN [Concomitant]
  2. CENTRUM [Concomitant]
     Active Substance: VITAMINS
  3. BIOTIN [Concomitant]
     Active Substance: BIOTIN
  4. 2?REDS [Concomitant]
  5. DIFFERIN GEL [Suspect]
     Active Substance: ADAPALENE
     Indication: PRODUCT USED FOR UNKNOWN INDICATION
     Dosage: ?          QUANTITY:1 TOPICALLY;?
     Route: 061
     Dates: start: 20180201, end: 20180414
  6. VITAMIN E [Concomitant]
     Active Substance: .ALPHA.-TOCOPHEROL
  7. CALCIUM CITRATE [Concomitant]
     Active Substance: CALCIUM CITRATE
  8. VITC [Concomitant]

REACTIONS (1)
  - Alopecia [None]

NARRATIVE: CASE EVENT DATE: 20180301
